FAERS Safety Report 8778918 (Version 1)
Quarter: 2012Q4

REPORT INFORMATION
  Report Type: 
  Country: DE (occurrence: DE)
  Receive Date: 20120910
  Receipt Date: 20120910
  Transmission Date: 20130627
  Serious: Yes (Other)
  Sender: FDA-Public Use
  Company Number: DE-ELI_LILLY_AND_COMPANY-DE201209001452

PATIENT
  Age: 37 Year
  Sex: Female
  Weight: 79.5 kg

DRUGS (3)
  1. FLUCTIN [Suspect]
     Indication: BORDERLINE PERSONALITY DISORDER
     Dosage: 40 mg, qd
     Route: 048
     Dates: start: 20091113
  2. FLUCTIN [Suspect]
     Dosage: 10 mg, qd
     Route: 048
     Dates: end: 20100807
  3. FOLIO [Concomitant]
     Indication: PROPHYLAXIS
     Dosage: 0.8 mg, qd
     Route: 048

REACTIONS (4)
  - Cervical incompetence [Unknown]
  - Premature rupture of membranes [Unknown]
  - Exposure during pregnancy [Recovered/Resolved]
  - Off label use [Recovered/Resolved]
